FAERS Safety Report 5011635-X (Version None)
Quarter: 2006Q2

REPORT INFORMATION
  Report Type: 
  Country: None (occurrence: None)
  Receive Date: 20060526
  Receipt Date: 20060517
  Transmission Date: 20061013
  Serious: Yes (Other)
  Sender: FDA-Public Use
  Company Number: JP-JNJFOC-20050606939

PATIENT
  Sex: Male
  Weight: 55 kg

DRUGS (39)
  1. REMICADE [Suspect]
     Route: 042
  2. REMICADE [Suspect]
     Route: 042
  3. REMICADE [Suspect]
     Route: 042
  4. REMICADE [Suspect]
     Route: 042
  5. REMICADE [Suspect]
     Route: 042
  6. REMICADE [Suspect]
     Indication: RHEUMATOID ARTHRITIS
     Route: 042
  7. METHOTREXATE [Suspect]
  8. METHOTREXATE [Suspect]
  9. METHOTREXATE [Suspect]
  10. METHOTREXATE [Suspect]
  11. METHOTREXATE [Suspect]
     Indication: RHEUMATOID ARTHRITIS
  12. PREDONINE [Suspect]
  13. PREDONINE [Suspect]
  14. PREDONINE [Suspect]
     Indication: RHEUMATOID ARTHRITIS
  15. ISCOTIN [Concomitant]
  16. BACTRIM [Concomitant]
     Route: 048
  17. BACTRIM [Concomitant]
     Route: 048
  18. KAMAG G [Concomitant]
     Indication: CONSTIPATION
  19. GASTER D [Concomitant]
  20. MUCOSTA [Concomitant]
  21. RHEUMATREX [Concomitant]
  22. RHEUMATREX [Concomitant]
     Indication: RHEUMATOID ARTHRITIS
  23. INFREE [Concomitant]
     Indication: RHEUMATOID ARTHRITIS
  24. VOLTAREN [Concomitant]
     Indication: RHEUMATOID ARTHRITIS
  25. GRIMAC [Concomitant]
  26. GRIMAC [Concomitant]
  27. EURODIN [Concomitant]
     Indication: INSOMNIA
  28. DEPAS [Concomitant]
     Indication: INSOMNIA
  29. RHYTHMY [Concomitant]
     Indication: INSOMNIA
  30. PL [Concomitant]
  31. HALCION [Concomitant]
     Indication: INSOMNIA
  32. DIFLUCAN [Concomitant]
  33. ADRENAL HORMONE PREPARATIONS [Concomitant]
     Indication: RHEUMATOID ARTHRITIS
  34. ALOSENN [Concomitant]
  35. ALOSENN [Concomitant]
  36. ALOSENN [Concomitant]
  37. ALOSENN [Concomitant]
  38. ALOSENN [Concomitant]
     Indication: CONSTIPATION
  39. PYRIDOXAL [Concomitant]

REACTIONS (1)
  - PNEUMOCYSTIS JIROVECI INFECTION [None]
